FAERS Safety Report 9732805 (Version 2)
Quarter: 2014Q1

REPORT INFORMATION
  Report Type: Spontaneous
  Country: US (occurrence: US)
  Receive Date: 20131204
  Receipt Date: 20140117
  Transmission Date: 20141002
  Serious: Yes (Other)
  Sender: FDA-Public Use
  Company Number: US-PFIZER INC-2013341200

PATIENT
  Age: 64 Year
  Sex: Female
  Weight: 90.7 kg

DRUGS (2)
  1. XELJANZ [Suspect]
     Indication: RHEUMATOID ARTHRITIS
     Dosage: 5 MG, 1X/DAY
     Route: 048
  2. LEVOTHYROXINE [Concomitant]
     Dosage: UNK

REACTIONS (5)
  - Rheumatoid arthritis [Unknown]
  - Cystitis [Unknown]
  - Alopecia [Not Recovered/Not Resolved]
  - Malaise [Unknown]
  - Gait disturbance [Unknown]
